FAERS Safety Report 5402813-6 (Version None)
Quarter: 2007Q3

REPORT INFORMATION
  Report Type: 
  Country: None (occurrence: None)
  Receive Date: 20070730
  Receipt Date: 20070723
  Transmission Date: 20080115
  Serious: No
  Sender: FDA-Public Use
  Company Number: THQ2007A00656

PATIENT
  Age: 73 Year
  Sex: Male

DRUGS (1)
  1. LANSOPRAZOLE [Suspect]
     Dosage: 15-30 MG ( UNK, 1-2 CAPSULES), PER ORAL
     Route: 048
     Dates: start: 20061020, end: 20061030

REACTIONS (2)
  - HEADACHE [None]
  - VISION BLURRED [None]
